FAERS Safety Report 14014953 (Version 1)
Quarter: 2017Q3

REPORT INFORMATION
  Report Type: Spontaneous
  Country: DK (occurrence: DK)
  Receive Date: 20170927
  Receipt Date: 20170927
  Transmission Date: 20171128
  Serious: Yes (Other)
  Sender: FDA-Public Use
  Company Number: DK-MERCK KGAA-2027867

PATIENT
  Age: 64 Year
  Sex: Female

DRUGS (2)
  1. LOSARTAN. [Concomitant]
     Active Substance: LOSARTAN
     Dates: start: 201602
  2. NOVOTHYROX [Suspect]
     Active Substance: LEVOTHYROXINE SODIUM
     Indication: MYXOEDEMA
     Route: 048

REACTIONS (3)
  - Atrial fibrillation [None]
  - Cardioversion [None]
  - Atrial flutter [None]

NARRATIVE: CASE EVENT DATE: 20161029
